FAERS Safety Report 5444797-0 (Version None)
Quarter: 2007Q3

REPORT INFORMATION
  Report Type: 
  Country: None (occurrence: None)
  Receive Date: 20070904
  Receipt Date: 20070904
  Transmission Date: 20080115
  Serious: No
  Sender: FDA-Public Use
  Company Number: None

PATIENT
  Sex: Female
  Weight: 52.3 kg

DRUGS (3)
  1. CYTARABINE [Suspect]
     Dosage: 4823 MG
  2. DAUNORUBICIN HCL [Suspect]
     Dosage: 78 MG
  3. MYLOTARG [Suspect]
     Dosage: 10 MG

REACTIONS (7)
  - DYSPNOEA [None]
  - ENCEPHALOPATHY [None]
  - HEPATIC CONGESTION [None]
  - HEPATIC NECROSIS [None]
  - HEPATOMEGALY [None]
  - URINE OUTPUT DECREASED [None]
  - VENOOCCLUSIVE LIVER DISEASE [None]
